FAERS Safety Report 19720873 (Version 1)
Quarter: 2021Q3

REPORT INFORMATION
  Report Type: Spontaneous
  Country: US (occurrence: US)
  Receive Date: 20210819
  Receipt Date: 20210819
  Transmission Date: 20211014
  Serious: No
  Sender: FDA-Public Use
  Company Number: None

PATIENT
  Age: 52 Year
  Sex: Female
  Weight: 201 kg

DRUGS (2)
  1. AZTREONAM. [Concomitant]
     Active Substance: AZTREONAM
     Dates: start: 20210806
  2. VANCOMYCIN [Suspect]
     Active Substance: VANCOMYCIN
     Indication: CELLULITIS
     Route: 042
     Dates: start: 20210806, end: 20210818

REACTIONS (1)
  - Rash [None]

NARRATIVE: CASE EVENT DATE: 20210818
